FAERS Safety Report 11920111 (Version 1)
Quarter: 2016Q1

REPORT INFORMATION
  Report Type: Spontaneous
  Country: US (occurrence: None)
  Receive Date: 20160114
  Receipt Date: 20160114
  Transmission Date: 20160526
  Serious: No
  Sender: FDA-Public Use
  Company Number: None

PATIENT
  Age: 89 Year
  Sex: Male
  Weight: 65.6 kg

DRUGS (1)
  1. MORPHINE 2 MG HOSPIRA [Suspect]
     Active Substance: MORPHINE
     Indication: PAIN
     Route: 042
     Dates: start: 20160108, end: 20160108

REACTIONS (1)
  - Injection site pruritus [None]

NARRATIVE: CASE EVENT DATE: 20160108
